FAERS Safety Report 15706677 (Version 1)
Quarter: 2018Q4

REPORT INFORMATION
  Report Type: Spontaneous
  Country: US (occurrence: US)
  Receive Date: 20181210
  Receipt Date: 20181210
  Transmission Date: 20190205
  Serious: No
  Sender: FDA-Public Use
  Company Number: US-DUCHESNAY INC.-2059943

PATIENT
  Sex: Female

DRUGS (2)
  1. OSPHENA [Suspect]
     Active Substance: OSPEMIFENE
     Indication: PRODUCT USED FOR UNKNOWN INDICATION
     Route: 048
  2. HOMEOPATHIC ESTROGEN SUPPLEMENT [Concomitant]

REACTIONS (2)
  - Oestradiol increased [Unknown]
  - Labelled drug-drug interaction medication error [Recovered/Resolved]
